FAERS Safety Report 16986563 (Version 1)
Quarter: 2019Q4

REPORT INFORMATION
  Report Type: Spontaneous
  Country: US (occurrence: US)
  Receive Date: 20191103
  Receipt Date: 20191103
  Transmission Date: 20200122
  Serious: No
  Sender: FDA-Public Use
  Company Number: US-JNJFOC-20191045564

PATIENT
  Sex: Female
  Weight: 89.89 kg

DRUGS (1)
  1. TYLENOL [Suspect]
     Active Substance: ACETAMINOPHEN
     Indication: HEADACHE
     Dosage: 2 CAPLETS COUPLE OF TIMES A DAY
     Route: 048
     Dates: start: 20191020

REACTIONS (1)
  - Drug ineffective [Unknown]
